FAERS Safety Report 11112123 (Version 2)
Quarter: 2015Q2

REPORT INFORMATION
  Report Type: Report from Study
  Country: US (occurrence: None)
  Receive Date: 20150512
  Receipt Date: 20150514
  Transmission Date: 20150821
  Serious: Yes (Hospitalization)
  Sender: FDA-Public Use
  Company Number: US2015052844

PATIENT
  Age: 42 Year
  Sex: Female
  Weight: 133.3 kg

DRUGS (16)
  1. PHENERGAN [Concomitant]
     Active Substance: PROMETHAZINE HYDROCHLORIDE
  2. DOLUTEGRAVIR (DOLUTEGRAVIR) [Concomitant]
  3. LABETOLOL [Concomitant]
     Active Substance: LABETALOL HYDROCHLORIDE
  4. DILAUDID [Concomitant]
     Active Substance: HYDROMORPHONE HYDROCHLORIDE
  5. REGLAN (METOCLOPRAMIDE HYDROCHLORIDE) [Concomitant]
  6. ZOFRAN [Concomitant]
     Active Substance: ONDANSETRON HYDROCHLORIDE
  7. ABACAVIR [Concomitant]
     Active Substance: ABACAVIR
  8. ABACAVIRSULPHATE+DOLUTEGRAVIR+LAMIVUDINE(ABACAVIR SULPHATE, DOLUTEGRAVIR, LAMIVUDINE) TABLET [Suspect]
     Active Substance: ABACAVIR SULFATE\DOLUTEGRAVIR SODIUM\LAMIVUDINE
     Indication: HIV INFECTION
     Dosage: 1 UNK, QD, ORAL
     Route: 048
     Dates: start: 20140805
  9. OXYCODONE-ACETAMINOPHEN (OXYCODONE HYDROCHLORIDE, PARACETAMOL) [Concomitant]
  10. ENOXAPARIN [Concomitant]
     Active Substance: ENOXAPARIN
  11. FAMOTIDINE (FAMOTIDINE) [Concomitant]
     Active Substance: FAMOTIDINE
  12. HYDRALAZINE (HYDRALAZINE) [Concomitant]
     Active Substance: HYDRALAZINE HYDROCHLORIDE
  13. LAMIVUDINE (LAMIVUDINE) [Concomitant]
     Active Substance: LAMIVUDINE
  14. BACTRIM DS (SULFAMETHOXAZOLE, TRIMETHOPRIM) [Concomitant]
  15. HEPARIN (HEPARIN (NOS)) [Concomitant]
  16. CEFPODOXIME (CEFPODOXIME) [Concomitant]

REACTIONS (4)
  - Urinary tract infection [None]
  - Renal tubular necrosis [None]
  - Chronic kidney disease [None]
  - Abdominal pain [None]

NARRATIVE: CASE EVENT DATE: 20150325
